FAERS Safety Report 8990015 (Version 2)
Quarter: 2013Q2

REPORT INFORMATION
  Report Type: Spontaneous
  Country: JP (occurrence: JP)
  Receive Date: 20121228
  Receipt Date: 20130501
  Transmission Date: 20140414
  Serious: Yes (Other)
  Sender: FDA-Public Use
  Company Number: PHHY2012JP120549

PATIENT
  Age: 70 Year
  Sex: Female

DRUGS (1)
  1. PRAMIPEXOLE [Suspect]
     Indication: GAIT DISTURBANCE
     Dosage: 4.5 MG, PER DAY

REACTIONS (2)
  - Camptocormia [Recovering/Resolving]
  - Meningioma [Unknown]
